FAERS Safety Report 15214464 (Version 1)
Quarter: 2018Q3

REPORT INFORMATION
  Report Type: Spontaneous
  Country: US (occurrence: US)
  Receive Date: 20180730
  Receipt Date: 20180730
  Transmission Date: 20181010
  Serious: Yes (Other)
  Sender: FDA-Public Use
  Company Number: US-TEVA-2018-US-932706

PATIENT

DRUGS (1)
  1. PROAIR HFA [Suspect]
     Active Substance: ALBUTEROL SULFATE
     Dosage: INHALATION ? AEROSOL
     Route: 065

REACTIONS (4)
  - Device issue [Unknown]
  - Asthma [Unknown]
  - Medication residue present [Unknown]
  - Wrong technique in product usage process [Unknown]
